FAERS Safety Report 9449272 (Version 1)
Quarter: 2013Q3

REPORT INFORMATION
  Report Type: Report from Study
  Country: GB (occurrence: GB)
  Receive Date: 20130808
  Receipt Date: 20130808
  Transmission Date: 20140515
  Serious: Yes (Hospitalization)
  Sender: FDA-Public Use
  Company Number: GB-GLAXOSMITHKLINE-Z0018205F

PATIENT
  Age: 64 Year
  Sex: Female
  Weight: 52.1 kg

DRUGS (5)
  1. DABRAFENIB [Suspect]
     Indication: MALIGNANT MELANOMA
     Dosage: 150MG TWICE PER DAY
     Route: 048
     Dates: start: 20121213
  2. TRAMETINIB [Suspect]
     Indication: MALIGNANT MELANOMA
     Dosage: 2MG PER DAY
     Route: 048
     Dates: start: 20121213
  3. PREDNISOLONE [Concomitant]
     Indication: PROPHYLAXIS
     Dosage: 10MG ALTERNATE DAYS
     Route: 048
     Dates: start: 20130330, end: 20130710
  4. OMEPRAZOLE [Concomitant]
     Indication: PROPHYLAXIS
     Dosage: 20MG ALTERNATE DAYS
     Route: 048
     Dates: start: 20130330
  5. CO-AMOXICLAV [Concomitant]
     Indication: PROPHYLAXIS
     Dosage: 625MG EVERY 3 DAYS
     Route: 048
     Dates: start: 20130710

REACTIONS (1)
  - Pyrexia [Recovered/Resolved]
